FAERS Safety Report 15742092 (Version 2)
Quarter: 2019Q1

REPORT INFORMATION
  Report Type: Report from Study
  Country: US (occurrence: US)
  Receive Date: 20181219
  Receipt Date: 20190126
  Transmission Date: 20190417
  Serious: Yes (Other)
  Sender: FDA-Public Use
  Company Number: PHEH2018US053237

PATIENT
  Age: 48 Year
  Sex: Female

DRUGS (1)
  1. GILENYA [Suspect]
     Active Substance: FINGOLIMOD HYDROCHLORIDE
     Indication: MULTIPLE SCLEROSIS
     Dosage: 0.5 MG, QD
     Route: 048
     Dates: start: 20180517

REACTIONS (9)
  - Multiple sclerosis relapse [Recovering/Resolving]
  - Muscle spasticity [Unknown]
  - Feeling abnormal [Unknown]
  - Hemiparesis [Unknown]
  - Headache [Unknown]
  - Progressive multiple sclerosis [Unknown]
  - Pain [Unknown]
  - Optic neuritis [Unknown]
  - Feeling of body temperature change [Unknown]

NARRATIVE: CASE EVENT DATE: 20180915
